FAERS Safety Report 8076422-7 (Version None)
Quarter: 2012Q1

REPORT INFORMATION
  Report Type: 
  Country: None (occurrence: None)
  Receive Date: 20120127
  Receipt Date: 20120126
  Transmission Date: 20120608
  Serious: No
  Sender: FDA-Public Use
  Company Number: US-BAYER-2012-008649

PATIENT
  Age: 57 Year
  Sex: Female
  Weight: 47.619 kg

DRUGS (13)
  1. CYMBALTA [Concomitant]
  2. PROMETHAZINE [Concomitant]
  3. OXYCONTIN [Concomitant]
  4. FIORICET [Concomitant]
  5. MULTI-VITAMINS [Concomitant]
  6. CALTRATE [CALCIUM CARBONATE] [Concomitant]
  7. PRILOSEC [Concomitant]
  8. BACLOFEN [Concomitant]
  9. BETASERON [Suspect]
     Indication: PRODUCT USED FOR UNKNOWN INDICATION
     Dosage: 0.3 MG, QOD
  10. LEVOTHYROXINE SODIUM [Concomitant]
  11. OXYCODONE HCL [Concomitant]
  12. MOTRIN [Concomitant]
  13. OXYBUTYNIN [Concomitant]

REACTIONS (2)
  - MYALGIA [None]
  - GAIT DISTURBANCE [None]
